FAERS Safety Report 9100380 (Version 2)
Quarter: 2013Q1

REPORT INFORMATION
  Report Type: Spontaneous
  Country: FR (occurrence: FR)
  Receive Date: 20130214
  Receipt Date: 20130314
  Transmission Date: 20140127
  Serious: Yes (Death, Life-Threatening, Hospitalization)
  Sender: FDA-Public Use
  Company Number: FR-BAYER-2013-017314

PATIENT
  Age: 46 Year
  Sex: Female
  Weight: 57 kg

DRUGS (1)
  1. QLAIRA [Suspect]
     Dosage: 1 DF, QD
     Route: 048
     Dates: start: 201206

REACTIONS (3)
  - Pulmonary embolism [Fatal]
  - Cardio-respiratory arrest [Fatal]
  - Death [Fatal]
